FAERS Safety Report 7226168-X (Version None)
Quarter: 2011Q1

REPORT INFORMATION
  Report Type: 
  Country: None (occurrence: None)
  Receive Date: 20110114
  Receipt Date: 20110106
  Transmission Date: 20110831
  Serious: Yes (Hospitalization, Other)
  Sender: FDA-Public Use
  Company Number: US-BIOGENIDEC-2011BI000959

PATIENT
  Age: 51 Year
  Sex: Female
  Weight: 65 kg

DRUGS (4)
  1. LYRICA [Concomitant]
     Indication: MUSCLE SPASMS
     Route: 048
     Dates: start: 20070101
  2. AVONEX [Suspect]
     Indication: MULTIPLE SCLEROSIS
     Route: 030
     Dates: start: 20101208, end: 20101222
  3. AVONEX [Suspect]
     Route: 030
     Dates: start: 19990801, end: 20020101
  4. AVONEX [Suspect]
     Route: 030
     Dates: start: 20050101, end: 20060101

REACTIONS (11)
  - CARDIAC FAILURE CONGESTIVE [None]
  - INFLUENZA LIKE ILLNESS [None]
  - BLOOD CHOLESTEROL INCREASED [None]
  - PRODUCTIVE COUGH [None]
  - ARTHROPATHY [None]
  - SWELLING [None]
  - DEPRESSION [None]
  - WHEEZING [None]
  - COUGH [None]
  - INTERVERTEBRAL DISC DISPLACEMENT [None]
  - DYSPNOEA [None]
